FAERS Safety Report 6518690-6 (Version None)
Quarter: 2009Q4

REPORT INFORMATION
  Report Type: 
  Country: None (occurrence: None)
  Receive Date: 20091228
  Receipt Date: 20091217
  Transmission Date: 20100525
  Serious: Yes (Death)
  Sender: FDA-Public Use
  Company Number: US-JNJFOC-20091102668

PATIENT
  Sex: Female
  Weight: 49.44 kg

DRUGS (4)
  1. REMICADE [Suspect]
     Indication: RHEUMATOID ARTHRITIS
     Dosage: LAST DOSE IN ^SUMMER^ 09
     Route: 042
     Dates: start: 20061201, end: 20090101
  2. METHOTREXATE [Concomitant]
     Indication: RHEUMATOID ARTHRITIS
     Dosage: TAKEN FOR } 10 YEARS
  3. PREDNISONE TAB [Concomitant]
     Indication: RHEUMATOID ARTHRITIS
     Dosage: TAKEN FOR ^YEARS^
  4. MS CONTIN [Concomitant]
     Indication: RHEUMATOID ARTHRITIS
     Dosage: TAKEN FOR ^YEARS^

REACTIONS (1)
  - METASTATIC SQUAMOUS CELL CARCINOMA [None]
